FAERS Safety Report 4623842-6 (Version None)
Quarter: 2005Q1

REPORT INFORMATION
  Report Type: 
  Country: None (occurrence: None)
  Receive Date: 20050331
  Receipt Date: 20050322
  Transmission Date: 20050727
  Serious: Yes (Death, Life-Threatening, Other)
  Sender: FDA-Public Use
  Company Number: 200512600GDDC

PATIENT
  Age: 68 Year
  Sex: Female
  Weight: 55 kg

DRUGS (8)
  1. CODE UNBROKEN [Suspect]
     Indication: MYOCARDIAL INFARCTION
     Dosage: DOSE: ENOXAPARIN OR PLACEBO BOLUS A: 30 MG
     Route: 040
  2. ASPIRIN [Suspect]
     Indication: MYOCARDIAL INFARCTION
     Route: 048
     Dates: start: 20050319, end: 20050321
  3. ALTEPLASE [Suspect]
     Indication: MYOCARDIAL INFARCTION
     Route: 042
     Dates: start: 20050319, end: 20050319
  4. CLOPIDOGREL [Concomitant]
     Dates: start: 20050319, end: 20050321
  5. PANTOPRAZOLE SODIUM [Concomitant]
     Dates: start: 20050319, end: 20050321
  6. ATORVASTATIN CALCIUM [Concomitant]
     Dates: start: 20050319, end: 20050321
  7. TRIMETAZIDINE [Concomitant]
     Dates: start: 20050319, end: 20050321
  8. AZITHROMYCIN [Concomitant]
     Dates: start: 20050319, end: 20050321

REACTIONS (2)
  - CARDIOGENIC SHOCK [None]
  - MYOCARDIAL INFARCTION [None]
